FAERS Safety Report 18816392 (Version 1)
Quarter: 2021Q1

REPORT INFORMATION
  Report Type: Spontaneous
  Country: US (occurrence: US)
  Receive Date: 20210201
  Receipt Date: 20210201
  Transmission Date: 20210419
  Serious: Yes (Other)
  Sender: FDA-Public Use
  Company Number: None

PATIENT
  Age: 56 Year
  Sex: Male
  Weight: 121.5 kg

DRUGS (10)
  1. LISINOPRIL. [Concomitant]
     Active Substance: LISINOPRIL
  2. MONTELUKAST SODIUM (GENERIC OF SINGULAIR) [Concomitant]
  3. PROAIR HFA (ALBUTEROL SULFATE) [Concomitant]
  4. DOXYLAMINE SUCCINATE. [Concomitant]
     Active Substance: DOXYLAMINE SUCCINATE
  5. CETIRIZINE HYDROCHLORIDE. [Concomitant]
     Active Substance: CETIRIZINE HYDROCHLORIDE
  6. MELATONIN [Concomitant]
     Active Substance: MELATONIN
  7. ONE A DAY MULTIVITAMIN FOR SENIORS [Concomitant]
  8. OMEPRAZOLE. [Concomitant]
     Active Substance: OMEPRAZOLE
  9. FAMILY CARE CLOTRIMAZOLE ANTI?FUNGAL CREAM 1% [Suspect]
     Active Substance: CLOTRIMAZOLE
     Indication: FUNGAL SKIN INFECTION
     Dosage: ?          OTHER STRENGTH:1 OZ;QUANTITY:1 TEASPOON(S);?
     Route: 061
     Dates: start: 20210130, end: 20210201
  10. ADVAIR DISKUS [Concomitant]
     Active Substance: FLUTICASONE PROPIONATE\SALMETEROL XINAFOATE

REACTIONS (9)
  - Fungal skin infection [None]
  - Product substitution issue [None]
  - Product use issue [None]
  - Condition aggravated [None]
  - Product physical consistency issue [None]
  - Pruritus [None]
  - Skin irritation [None]
  - Skin burning sensation [None]
  - Product odour abnormal [None]

NARRATIVE: CASE EVENT DATE: 20210130
